FAERS Safety Report 24402182 (Version 3)
Quarter: 2025Q1

REPORT INFORMATION
  Report Type: Spontaneous
  Country: US (occurrence: US)
  Receive Date: 20241007
  Receipt Date: 20250123
  Transmission Date: 20250408
  Serious: Yes (Other)
  Sender: CATALYST PHARMA
  Company Number: US-CATALYSTPHARMACEUTICALPARTNERS-US-CATA-24-01090

PATIENT
  Sex: Male

DRUGS (3)
  1. FYCOMPA [Suspect]
     Active Substance: PERAMPANEL
     Indication: Seizure
     Dosage: 2 MG ONCE DAILY
     Route: 048
     Dates: start: 20240827
  2. FYCOMPA [Suspect]
     Active Substance: PERAMPANEL
     Indication: Movement disorder
     Route: 048
     Dates: end: 20250107
  3. FYCOMPA [Suspect]
     Active Substance: PERAMPANEL
     Indication: Partial seizures
     Route: 048
     Dates: start: 202501

REACTIONS (12)
  - Seizure [Unknown]
  - Seizure [Unknown]
  - Seizure [Unknown]
  - Seizure [Not Recovered/Not Resolved]
  - Communication disorder [Unknown]
  - Stress [Not Recovered/Not Resolved]
  - Skin abrasion [Unknown]
  - Jaw disorder [Unknown]
  - Cerebral disorder [Unknown]
  - Limb injury [Unknown]
  - Contusion [Unknown]
  - Memory impairment [Not Recovered/Not Resolved]

NARRATIVE: CASE EVENT DATE: 20240101
